FAERS Safety Report 20310647 (Version 1)
Quarter: 2022Q1

REPORT INFORMATION
  Report Type: Spontaneous
  Country: FR (occurrence: FR)
  Receive Date: 20220107
  Receipt Date: 20220107
  Transmission Date: 20220423
  Serious: Yes (Other)
  Sender: FDA-Public Use
  Company Number: FR-JNJFOC-20220101356

PATIENT
  Age: 66 Year
  Sex: Female

DRUGS (7)
  1. SPRAVATO [Suspect]
     Active Substance: ESKETAMINE
     Indication: Product used for unknown indication
     Dates: start: 20211214
  2. SPRAVATO [Suspect]
     Active Substance: ESKETAMINE
     Dates: start: 20211216
  3. FOLIC ACID [Concomitant]
     Active Substance: FOLIC ACID
     Route: 048
  4. CITALOPRAM [Concomitant]
     Active Substance: CITALOPRAM HYDROBROMIDE
  5. LOXAPINE [Concomitant]
     Active Substance: LOXAPINE
  6. MIRTAZAPINE [Concomitant]
     Active Substance: MIRTAZAPINE
  7. PREGABALIN [Concomitant]
     Active Substance: PREGABALIN
     Dosage: STOPPED

REACTIONS (3)
  - Pulmonary embolism [Unknown]
  - Conjunctivitis [Unknown]
  - Face oedema [Unknown]

NARRATIVE: CASE EVENT DATE: 20211229
